FAERS Safety Report 7491150-4 (Version None)
Quarter: 2011Q2

REPORT INFORMATION
  Report Type: 
  Country: None (occurrence: None)
  Receive Date: 20110519
  Receipt Date: 20110516
  Transmission Date: 20111010
  Serious: Yes (Other)
  Sender: FDA-Public Use
  Company Number: AU-ROCHE-777519

PATIENT

DRUGS (1)
  1. MIRCERA [Suspect]
     Route: 065

REACTIONS (1)
  - RENAL FAILURE ACUTE [None]
